FAERS Safety Report 4354201-1 (Version None)
Quarter: 2004Q2

REPORT INFORMATION
  Report Type: 
  Country: None (occurrence: None)
  Receive Date: 20040506
  Receipt Date: 20040428
  Transmission Date: 20050107
  Serious: Yes (Death, Hospitalization)
  Sender: FDA-Public Use
  Company Number: PHBS2004IT05898

PATIENT
  Age: 36 Year
  Sex: Male

DRUGS (6)
  1. FAMVIR [Suspect]
     Indication: VARICELLA
     Dosage: 750 MG/DAY
     Route: 048
     Dates: start: 20040416, end: 20040419
  2. NEORAL [Concomitant]
  3. CELEBREX [Concomitant]
     Dosage: 2 DF/D
     Route: 048
  4. DELTACORTENE [Concomitant]
     Dosage: 25 MG
  5. METHOTREXATE [Concomitant]
     Dosage: 2.5
  6. GASTRO-PROTECTIVE DRUG [Concomitant]

REACTIONS (4)
  - CHEST PAIN [None]
  - CONDITION AGGRAVATED [None]
  - DEATH [None]
  - VARICELLA [None]
